FAERS Safety Report 22539470 (Version 1)
Quarter: 2023Q2

REPORT INFORMATION
  Report Type: Report from Study
  Country: BR (occurrence: BR)
  Receive Date: 20230609
  Receipt Date: 20230609
  Transmission Date: 20230722
  Serious: Yes (Other)
  Sender: FDA-Public Use
  Company Number: BR-JNJFOC-20230610978

PATIENT
  Age: 47 Year
  Sex: Female
  Weight: 63 kg

DRUGS (2)
  1. SIMPONI [Suspect]
     Active Substance: GOLIMUMAB
     Indication: Psoriatic arthropathy
     Route: 058
     Dates: start: 20230129
  2. DULOXETINE HYDROCHLORIDE [Suspect]
     Active Substance: DULOXETINE HYDROCHLORIDE
     Indication: Depression

REACTIONS (8)
  - Psoriatic arthropathy [Unknown]
  - Chest discomfort [Unknown]
  - Palpitations [Unknown]
  - Discomfort [Unknown]
  - Impatience [Unknown]
  - Suffocation feeling [Unknown]
  - Pain [Unknown]
  - Urinary tract infection [Unknown]

NARRATIVE: CASE EVENT DATE: 20230428
